FAERS Safety Report 22521690 (Version 1)
Quarter: 2023Q2

REPORT INFORMATION
  Report Type: Spontaneous
  Country: US (occurrence: US)
  Receive Date: 20230605
  Receipt Date: 20230605
  Transmission Date: 20230721
  Serious: Yes (Other)
  Sender: FDA-Public Use
  Company Number: US-WOODWARD-2023-US-014602

PATIENT
  Age: 48 Year
  Sex: Male

DRUGS (2)
  1. CARVEDILOL [Suspect]
     Active Substance: CARVEDILOL
     Indication: Hypertension
     Dosage: 25 MG TID DECREASED TO 12.5 MG BID
     Route: 065
  2. FLUOXETINE [Suspect]
     Active Substance: FLUOXETINE HYDROCHLORIDE
     Indication: Bipolar disorder
     Route: 065

REACTIONS (5)
  - Toxicity to various agents [Recovered/Resolved]
  - Hypotension [Recovered/Resolved]
  - Sinus bradycardia [Recovered/Resolved]
  - Metabolic acidosis [Unknown]
  - Drug interaction [Recovered/Resolved]
